FAERS Safety Report 9245750 (Version 1)
Quarter: 2013Q2

REPORT INFORMATION
  Report Type: Spontaneous
  Country: US (occurrence: US)
  Receive Date: 20130422
  Receipt Date: 20130422
  Transmission Date: 20140414
  Serious: Yes (Hospitalization)
  Sender: FDA-Public Use
  Company Number: 2013SP001103

PATIENT
  Sex: Female

DRUGS (5)
  1. LUNESTA [Suspect]
     Indication: INSOMNIA
     Route: 048
     Dates: end: 201303
  2. MORPHINE SULFATE [Concomitant]
     Indication: BACK PAIN
     Route: 048
  3. ALL OTHER THERAPEUTIC PRODUCTS [Concomitant]
     Indication: BACK PAIN
     Route: 048
  4. DIOVAN [Concomitant]
     Indication: HYPERTENSION
  5. METOPROLOL [Concomitant]
     Indication: HYPERTENSION

REACTIONS (4)
  - Loss of consciousness [Recovered/Resolved]
  - Aggression [Recovered/Resolved]
  - Emotional distress [Recovered/Resolved]
  - Amnesia [Recovered/Resolved]
